FAERS Safety Report 17052409 (Version 1)
Quarter: 2019Q4

REPORT INFORMATION
  Report Type: Spontaneous
  Country: US (occurrence: US)
  Receive Date: 20191119
  Receipt Date: 20191119
  Transmission Date: 20200122
  Serious: Yes (Hospitalization)
  Sender: FDA-Public Use
  Company Number: None

PATIENT
  Age: 39 Year
  Sex: Male

DRUGS (12)
  1. AZITHROMYCIN ANHYDROUS. [Concomitant]
     Active Substance: AZITHROMYCIN ANHYDROUS
  2. HUMALOG [Concomitant]
     Active Substance: INSULIN LISPRO
  3. MEROPENEM. [Concomitant]
     Active Substance: MEROPENEM
  4. SMZ-TMP [Concomitant]
     Active Substance: SULFAMETHOXAZOLE\TRIMETHOPRIM
  5. ALBUTEROL. [Concomitant]
     Active Substance: ALBUTEROL
  6. MG-PLUS [Concomitant]
  7. VALGANCICLOV [Concomitant]
  8. ZENPEP [Suspect]
     Active Substance: PANCRELIPASE AMYLASE\PANCRELIPASE LIPASE\PANCRELIPASE PROTEASE
     Indication: CYSTIC FIBROSIS
     Dosage: ?          OTHER FREQUENCY:5 TIMES A DAY;?
     Route: 048
     Dates: start: 20150415
  9. SODIUM CHLOR [Concomitant]
     Active Substance: SODIUM CHLORIDE
  10. ZITHROMAX [Concomitant]
     Active Substance: AZITHROMYCIN DIHYDRATE
  11. OMEPRAZOLE. [Concomitant]
     Active Substance: OMEPRAZOLE
  12. TOBRAMYCIN. [Concomitant]
     Active Substance: TOBRAMYCIN

REACTIONS (1)
  - Malaise [None]

NARRATIVE: CASE EVENT DATE: 20191115
